FAERS Safety Report 6974879-3 (Version None)
Quarter: 2010Q3

REPORT INFORMATION
  Report Type: 
  Country: None (occurrence: None)
  Receive Date: 20100909
  Receipt Date: 20081111
  Transmission Date: 20110219
  Serious: No
  Sender: FDA-Public Use
  Company Number: US-WYE-H07394308

PATIENT
  Sex: Female

DRUGS (3)
  1. PROTONIX [Suspect]
     Indication: ANTACID THERAPY
     Dosage: UNKNOWN
     Route: 048
     Dates: start: 20081110
  2. LISINOPRIL [Concomitant]
  3. EX-LAX [Suspect]
     Indication: LAXATIVE SUPPORTIVE CARE
     Dosage: UNKNOWN
     Route: 065

REACTIONS (2)
  - HEART RATE DECREASED [None]
  - NAUSEA [None]
